FAERS Safety Report 8371840-1 (Version None)
Quarter: 2012Q2

REPORT INFORMATION
  Report Type: 
  Country: None (occurrence: None)
  Receive Date: 20120518
  Receipt Date: 20120104
  Transmission Date: 20120825
  Serious: Yes (Hospitalization, Other)
  Sender: FDA-Public Use
  Company Number: BR-ROCHE-1023875

PATIENT
  Sex: Female
  Weight: 70 kg

DRUGS (8)
  1. FOLIC ACID [Concomitant]
  2. METHOTREXATE [Concomitant]
  3. ISONIAZID [Concomitant]
  4. ACTEMRA [Suspect]
     Indication: RHEUMATOID ARTHRITIS
     Dosage: SECOND INFUSION:08/AUG/2010
     Dates: start: 20100701, end: 20110901
  5. METICORTEN [Concomitant]
  6. OMEPRAZOLE [Concomitant]
  7. ACETAMINOPHEN [Concomitant]
     Indication: PAIN
  8. AMITRIPTYLINE HCL [Concomitant]

REACTIONS (3)
  - ASTHMA [None]
  - INFLUENZA [None]
  - LEPROSY [None]
